FAERS Safety Report 4388227-9 (Version None)
Quarter: 2004Q3

REPORT INFORMATION
  Report Type: 
  Country: None (occurrence: None)
  Receive Date: 20040701
  Receipt Date: 20040622
  Transmission Date: 20050211
  Serious: Yes (Death)
  Sender: FDA-Public Use
  Company Number: ZA-BRISTOL-MYERS SQUIBB COMPANY-12626800

PATIENT
  Age: 42 Year
  Sex: Male

DRUGS (2)
  1. EFAVIRENZ TABS [Suspect]
     Indication: HIV INFECTION
     Route: 048
     Dates: start: 20040212, end: 20040324
  2. COMBIVIR [Suspect]
     Indication: HIV INFECTION
     Route: 048
     Dates: start: 20040212, end: 20040411

REACTIONS (2)
  - HEPATITIS [None]
  - HIV WASTING SYNDROME [None]
